FAERS Safety Report 6295361-5 (Version None)
Quarter: 2009Q3

REPORT INFORMATION
  Report Type: 
  Country: None (occurrence: None)
  Receive Date: 20090803
  Receipt Date: 20090728
  Transmission Date: 20100115
  Serious: Yes (Death, Hospitalization)
  Sender: FDA-Public Use
  Company Number: DE-AMGEN-US358303

PATIENT
  Age: 65 Year
  Sex: Male

DRUGS (11)
  1. ENBREL [Suspect]
     Indication: DRUG USE FOR UNKNOWN INDICATION
     Dosage: 25 MG, SINGLE DOSE
     Route: 058
     Dates: start: 20050301, end: 20080930
  2. SIMVASTATIN [Concomitant]
  3. BELOC ZOK [Concomitant]
  4. TOREM [Concomitant]
  5. FOSAMAX [Concomitant]
  6. ENALAPRIL MALEATE [Concomitant]
  7. CALCILAC [Concomitant]
     Dosage: TWO TIMES DAILY
  8. NEXIUM [Concomitant]
  9. TEMGESIC [Concomitant]
  10. PREDNISOLONE [Concomitant]
     Dosage: FROM 02-OCT-2009 TO 05-OCT-2009 90 MG DAILY, FOR THE OTHER PERIOD UNKNOWN
     Dates: start: 19860101
  11. ENOXAPARIN SODIUM [Concomitant]

REACTIONS (4)
  - ACUTE PULMONARY OEDEMA [None]
  - MULTI-ORGAN FAILURE [None]
  - NECROTISING FASCIITIS [None]
  - STAPHYLOCOCCAL SEPSIS [None]
